FAERS Safety Report 4550652-0 (Version None)
Quarter: 2005Q1

REPORT INFORMATION
  Report Type: 
  Country: None (occurrence: None)
  Receive Date: 20050112
  Receipt Date: 20041223
  Transmission Date: 20050727
  Serious: Yes (Other)
  Sender: FDA-Public Use
  Company Number: FR-ABBOTT-04P-056-0284438-00

PATIENT
  Sex: Female
  Weight: 76 kg

DRUGS (1)
  1. KALETRA [Suspect]
     Indication: HIV INFECTION
     Dates: start: 20040630

REACTIONS (3)
  - ABORTION [None]
  - ABORTION SPONTANEOUS [None]
  - GENITAL HAEMORRHAGE [None]
